FAERS Safety Report 16552107 (Version 3)
Quarter: 2019Q3

REPORT INFORMATION
  Report Type: Spontaneous
  Country: IT (occurrence: IT)
  Receive Date: 20190710
  Receipt Date: 20190719
  Transmission Date: 20191004
  Serious: Yes (Other)
  Sender: FDA-Public Use
  Company Number: IT-PFIZER INC-2019294981

PATIENT
  Age: 10 Year
  Sex: Male

DRUGS (4)
  1. CYCLOSPORINE. [Concomitant]
     Active Substance: CYCLOSPORINE
     Indication: COLITIS
     Dosage: UNK
     Route: 065
  2. CYCLOSPORIN A [Concomitant]
     Active Substance: CYCLOSPORINE
     Indication: COLITIS
     Dosage: UNK
     Route: 048
  3. AZATHIOPRINE. [Concomitant]
     Active Substance: AZATHIOPRINE
     Indication: COLITIS
     Dosage: UNK
     Route: 065
  4. INFLIXIMAB PFIZER [Suspect]
     Active Substance: INFLIXIMAB
     Indication: COLITIS
     Dosage: UNK
     Route: 065

REACTIONS (4)
  - Off label use [Recovering/Resolving]
  - Chronic granulomatous disease [Recovering/Resolving]
  - Haemophagocytic lymphohistiocytosis [Recovering/Resolving]
  - Product use in unapproved indication [Recovering/Resolving]
